FAERS Safety Report 7273180-0 (Version None)
Quarter: 2011Q1

REPORT INFORMATION
  Report Type: 
  Country: None (occurrence: None)
  Receive Date: 20110203
  Receipt Date: 20101028
  Transmission Date: 20110831
  Serious: No
  Sender: FDA-Public Use
  Company Number: US-ABBOTT-10P-163-0682534-00

PATIENT
  Sex: Female
  Weight: 45.4 kg

DRUGS (3)
  1. SYNTHROID [Suspect]
     Indication: HYPOTHYROIDISM
     Dates: start: 20090201
  2. SYNTHROID [Suspect]
     Indication: AUTOIMMUNE THYROIDITIS
  3. CITOMEL [Concomitant]
     Indication: HYPOTHYROIDISM

REACTIONS (4)
  - MUSCULAR WEAKNESS [None]
  - MYASTHENIA GRAVIS [None]
  - PAROSMIA [None]
  - EATING DISORDER [None]
